FAERS Safety Report 5241084-0 (Version None)
Quarter: 2007Q1

REPORT INFORMATION
  Report Type: 
  Country: None (occurrence: None)
  Receive Date: 20070214
  Receipt Date: 20070214
  Transmission Date: 20070707
  Serious: Yes (Hospitalization)
  Sender: FDA-Public Use
  Company Number: None

PATIENT
  Age: 36 Year
  Sex: Male

DRUGS (12)
  1. VANCOMYCIN [Suspect]
     Indication: OSTEOMYELITIS
     Dates: start: 20061012, end: 20061025
  2. ZOSYN [Suspect]
     Indication: OSTEOMYELITIS
     Dates: start: 20061012, end: 20061025
  3. AMITRIPTYLINE HCL [Concomitant]
  4. CURASOL WOUND CLEANSER [Concomitant]
  5. ENALAPRIL MALEATE [Concomitant]
  6. FELODIPINE [Concomitant]
  7. FLUNISOLIDE NASAL SPRAY [Concomitant]
  8. HYDROCHLOROTHIAZIDE [Concomitant]
  9. NOVOLIN 70/30 [Concomitant]
  10. LOPERAMIDE HCL [Concomitant]
  11. LORATADINE [Concomitant]
  12. METOCLOPRAMIDE HCL [Concomitant]

REACTIONS (4)
  - BODY TEMPERATURE INCREASED [None]
  - NAUSEA [None]
  - NEPHRITIS INTERSTITIAL [None]
  - RENAL FAILURE ACUTE [None]
